FAERS Safety Report 19065974 (Version 1)
Quarter: 2021Q1

REPORT INFORMATION
  Report Type: Report from Study
  Country: IT (occurrence: IT)
  Receive Date: 20210327
  Receipt Date: 20210327
  Transmission Date: 20210420
  Serious: Yes (Hospitalization)
  Sender: FDA-Public Use
  Company Number: IT-ACCORD-220664

PATIENT
  Age: 85 Year
  Sex: Male

DRUGS (11)
  1. LUVION [Concomitant]
  2. CARDIOASPIRIN [Concomitant]
     Active Substance: ASPIRIN
  3. TRIATEC (RAMIPRIL) [Suspect]
     Active Substance: RAMIPRIL
     Indication: PRODUCT USED FOR UNKNOWN INDICATION
     Dates: start: 20210101, end: 20210130
  4. BISOPROLOL [Concomitant]
     Active Substance: BISOPROLOL
  5. CRESTOR [Concomitant]
     Active Substance: ROSUVASTATIN CALCIUM
  6. ENOXAPARIN [Concomitant]
     Active Substance: ENOXAPARIN
  7. METFORMIN [Concomitant]
     Active Substance: METFORMIN HYDROCHLORIDE
  8. FUROSEMIDE. [Suspect]
     Active Substance: FUROSEMIDE
     Indication: PRODUCT USED FOR UNKNOWN INDICATION
     Dates: start: 20210101, end: 20210130
  9. PANTORC [Concomitant]
     Active Substance: PANTOPRAZOLE SODIUM
  10. TAMSULOSIN/TAMSULOSIN HYDROCHLORIDE [Concomitant]
     Active Substance: TAMSULOSIN HYDROCHLORIDE
  11. TRAJENTA [Concomitant]
     Active Substance: LINAGLIPTIN

REACTIONS (3)
  - Hyponatraemia [Recovering/Resolving]
  - Disease recurrence [Recovering/Resolving]
  - Renal failure [Recovering/Resolving]

NARRATIVE: CASE EVENT DATE: 20210130
